FAERS Safety Report 18560006 (Version 5)
Quarter: 2023Q2

REPORT INFORMATION
  Report Type: Report from Study
  Country: JP (occurrence: JP)
  Receive Date: 20201130
  Receipt Date: 20230512
  Transmission Date: 20230722
  Serious: Yes (Hospitalization, Other)
  Sender: FDA-Public Use
  Company Number: JP-SHIRE-JP201512381

PATIENT
  Age: 0 Year
  Sex: Male

DRUGS (62)
  1. VELAGLUCERASE ALFA [Suspect]
     Active Substance: VELAGLUCERASE ALFA
     Indication: Gaucher^s disease type II
     Dosage: 60 IU/KG, 1X/2WKS (IN THE FIRST TIME ONLY 1X/3WKS)
     Route: 041
     Dates: start: 20140918, end: 20150304
  2. VELAGLUCERASE ALFA [Suspect]
     Active Substance: VELAGLUCERASE ALFA
     Dosage: 60 IU/KG, 1X/2WKS
     Route: 041
     Dates: start: 20150318
  3. VELAGLUCERASE ALFA [Suspect]
     Active Substance: VELAGLUCERASE ALFA
     Dosage: 800IU, 1X/2WKS
     Route: 041
     Dates: start: 20160928
  4. VELAGLUCERASE ALFA [Suspect]
     Active Substance: VELAGLUCERASE ALFA
     Dosage: 1200IU, 1X/2WKS
     Route: 041
     Dates: start: 20180117
  5. VELAGLUCERASE ALFA [Suspect]
     Active Substance: VELAGLUCERASE ALFA
     Dosage: 800IU, 1X/2WKS
     Route: 041
     Dates: start: 20171025
  6. VELAGLUCERASE ALFA [Suspect]
     Active Substance: VELAGLUCERASE ALFA
     Dosage: 1200IU, 1X/2WKS
     Route: 041
     Dates: start: 20180411
  7. VELAGLUCERASE ALFA [Suspect]
     Active Substance: VELAGLUCERASE ALFA
     Dosage: 3 DOSAGE FORM
     Route: 041
     Dates: end: 20200603
  8. VELAGLUCERASE ALFA [Suspect]
     Active Substance: VELAGLUCERASE ALFA
     Dosage: 80 INTERNATIONAL UNIT/KILOGRAM, 4 VILALS
     Route: 041
     Dates: start: 202006, end: 202009
  9. VELAGLUCERASE ALFA [Suspect]
     Active Substance: VELAGLUCERASE ALFA
     Dosage: 70 INTERNATIONAL UNIT/KILOGRAM, 3 VILALS
     Route: 041
     Dates: start: 202009
  10. VELAGLUCERASE ALFA [Suspect]
     Active Substance: VELAGLUCERASE ALFA
     Dosage: 4 DOSAGE FORM,1600 IU
     Route: 041
     Dates: start: 20200617
  11. DIAZEPAM [Concomitant]
     Active Substance: DIAZEPAM
     Indication: Gaucher^s disease type II
     Dosage: 4.8-10 MG, UNKNOWN
     Route: 048
     Dates: end: 20180619
  12. DIAZEPAM [Concomitant]
     Active Substance: DIAZEPAM
     Dosage: 10-15 MG, UNKNOWN
     Route: 048
     Dates: start: 20180620
  13. LIORESAL [Concomitant]
     Active Substance: BACLOFEN
     Indication: Gaucher^s disease type II
     Dosage: 5-12 MG, UNKNOWN
     Route: 048
  14. LIORESAL [Concomitant]
     Active Substance: BACLOFEN
     Dosage: 12 MG, UNKNOWN
     Route: 048
  15. CARBOCYSTEINE [Concomitant]
     Active Substance: CARBOCYSTEINE
     Indication: Product used for unknown indication
     Dosage: 240 MG, UNKNOWN
     Route: 048
     Dates: end: 20160715
  16. CARBOCYSTEINE [Concomitant]
     Active Substance: CARBOCYSTEINE
     Indication: Product used for unknown indication
  17. RISPERDAL [Concomitant]
     Active Substance: RISPERIDONE
     Indication: Gaucher^s disease type II
     Dosage: 0.6 MG, UNKNOWN
     Route: 048
     Dates: start: 20150225, end: 20150314
  18. RISPERDAL [Concomitant]
     Active Substance: RISPERIDONE
     Dosage: 0.5MG, UNKNOWN
     Route: 048
     Dates: start: 20150316
  19. RISPERDAL [Concomitant]
     Active Substance: RISPERIDONE
     Dosage: 1 MG, UNKNOWN
     Route: 048
  20. PHENOBARBITAL [Concomitant]
     Active Substance: PHENOBARBITAL
     Indication: Gaucher^s disease type II
     Dosage: 70-100 MG, UNKNOWN
     Route: 048
     Dates: start: 20150307
  21. PHENOBARBITAL [Concomitant]
     Active Substance: PHENOBARBITAL
     Dosage: 30-100MG/DAY, UNKNOWN
     Route: 048
     Dates: start: 20150307
  22. PHENOBARBITAL [Concomitant]
     Active Substance: PHENOBARBITAL
     Dosage: 100 MG, UNKNOWN
     Route: 048
     Dates: end: 20170228
  23. PHENOBARBITAL [Concomitant]
     Active Substance: PHENOBARBITAL
     Dosage: 230 MG, UNKNOWN
     Route: 048
     Dates: start: 20170301, end: 20180817
  24. PHENOBARBITAL [Concomitant]
     Active Substance: PHENOBARBITAL
     Dosage: 375 MG, UNKNOWN
     Route: 048
     Dates: start: 20180818
  25. PHENOBARBITAL [Concomitant]
     Active Substance: PHENOBARBITAL
     Dosage: 380MG, UNKNOWN
     Route: 048
     Dates: end: 20201016
  26. PHENOBARBITAL [Concomitant]
     Active Substance: PHENOBARBITAL
     Dosage: 400MG, UNKNOWN
     Route: 048
     Dates: start: 20201021
  27. TIZANIDINE [Concomitant]
     Active Substance: TIZANIDINE
     Indication: Gaucher^s disease type II
     Dosage: 0.4 -5.0 MG, UNKNOWN
     Route: 048
     Dates: start: 20150324
  28. DEPAKENE                           /00228501/ [Concomitant]
     Indication: Gaucher^s disease type II
     Dosage: 225-750 MG, UNK
     Route: 048
  29. DEPAKENE                           /00228501/ [Concomitant]
     Dosage: 300 MG, UNKNOWN
     Route: 048
     Dates: end: 20170228
  30. DEPAKENE                           /00228501/ [Concomitant]
     Dosage: 600 MILLIGRAM, UNKNOWN
     Route: 048
     Dates: start: 20170331, end: 20171208
  31. DEPAKENE                           /00228501/ [Concomitant]
     Dosage: 400 MILLIGRAM, UNKNOWN
     Route: 048
     Dates: start: 20171209
  32. DEPAKENE                           /00228501/ [Concomitant]
     Dosage: UNK
  33. GABAPENTIN [Concomitant]
     Active Substance: GABAPENTIN
     Indication: Gaucher^s disease type II
     Dosage: 200-700 MG, UNKNOWN
     Route: 065
     Dates: start: 20160529
  34. GABAPENTIN [Concomitant]
     Active Substance: GABAPENTIN
     Dosage: 250 MG, UNKNOWN
     Route: 048
     Dates: end: 20160928
  35. GABAPENTIN [Concomitant]
     Active Substance: GABAPENTIN
     Dosage: 700 MG, UNKNOWN
     Route: 065
     Dates: start: 20160929, end: 20161001
  36. GABAPENTIN [Concomitant]
     Active Substance: GABAPENTIN
     Dosage: 1500 MG, UNKNOWN
     Route: 065
     Dates: start: 20161002, end: 20161030
  37. GABAPENTIN [Concomitant]
     Active Substance: GABAPENTIN
     Dosage: 300 MG, UNKNOWN
     Route: 065
     Dates: start: 20180820
  38. CLONAZEPAM [Concomitant]
     Active Substance: CLONAZEPAM
     Indication: Gaucher^s disease type II
     Dosage: 1-2 MG, UNKNOWN
     Route: 048
     Dates: start: 20160730
  39. CLONAZEPAM [Concomitant]
     Active Substance: CLONAZEPAM
     Dosage: 2 MG, UNKNOWN
     Route: 048
     Dates: end: 20170815
  40. CLONAZEPAM [Concomitant]
     Active Substance: CLONAZEPAM
     Dosage: 2.4 MG, UNKNOWN
     Route: 048
     Dates: start: 20170816, end: 20171004
  41. CLONAZEPAM [Concomitant]
     Active Substance: CLONAZEPAM
     Dosage: 2.4 MG, UNKNOWN
     Route: 048
     Dates: start: 20170816, end: 20171004
  42. CLONAZEPAM [Concomitant]
     Active Substance: CLONAZEPAM
     Dosage: 4.8 MILLIGRAM
     Route: 048
     Dates: start: 20171005
  43. AMPICILLIN SODIUM\SULBACTAM SODIUM [Concomitant]
     Active Substance: AMPICILLIN SODIUM\SULBACTAM SODIUM
     Indication: Product used for unknown indication
     Dosage: 1.35 G, UNKNOWN
     Route: 042
     Dates: start: 20160920, end: 20160926
  44. PHENOBARBITAL SODIUM [Concomitant]
     Active Substance: PHENOBARBITAL SODIUM
     Indication: Gaucher^s disease type II
     Dosage: 200 MG, UNK
     Route: 042
     Dates: start: 20161026, end: 20161029
  45. PHENOBARBITAL SODIUM [Concomitant]
     Active Substance: PHENOBARBITAL SODIUM
     Dosage: 200 MG, UNK
     Route: 042
     Dates: end: 20180817
  46. LEVODOPA [Concomitant]
     Active Substance: LEVODOPA
     Indication: Product used for unknown indication
     Dosage: 80 MG, UNKNOWN
     Route: 048
     Dates: start: 20160920, end: 20161011
  47. FAMOTIDINE [Concomitant]
     Active Substance: FAMOTIDINE
     Indication: Adverse event
     Dosage: 8 MG, UNKNOWN
     Route: 048
     Dates: start: 20160506, end: 20160924
  48. FAMOTIDINE [Concomitant]
     Active Substance: FAMOTIDINE
     Dosage: 12 MILLIGRAM
     Route: 048
     Dates: start: 20180727
  49. SULFAMETHOXAZOLE\TRIMETHOPRIM [Concomitant]
     Active Substance: SULFAMETHOXAZOLE\TRIMETHOPRIM
     Indication: Product used for unknown indication
     Dosage: 0.36 G, UNKNOWN
     Route: 048
  50. ALLOPURINOL [Concomitant]
     Active Substance: ALLOPURINOL
     Indication: Blood uric acid increased
     Dosage: 100 MG, UNKNOWN
     Route: 048
     Dates: start: 20170425, end: 20180911
  51. ALLOPURINOL [Concomitant]
     Active Substance: ALLOPURINOL
     Dosage: 120 MG, UNKNOWN
     Route: 048
     Dates: start: 20180912
  52. ALLOPURINOL [Concomitant]
     Active Substance: ALLOPURINOL
     Dosage: 140 MG, UNKNOWN
     Route: 048
  53. FYCOMPA [Concomitant]
     Active Substance: PERAMPANEL
     Indication: Gaucher^s disease type II
     Dosage: 0.5-1.5MG
     Route: 048
     Dates: start: 20171114, end: 20200908
  54. FYCOMPA [Concomitant]
     Active Substance: PERAMPANEL
     Indication: Gaucher^s disease type II
     Dosage: 1.5 MILLIGRAM
     Route: 048
     Dates: start: 20200909
  55. AMBROXOL HYDROCHLORIDE [Concomitant]
     Active Substance: AMBROXOL HYDROCHLORIDE
     Indication: Gaucher^s disease type II
     Dosage: 468 MILLIGRAM
     Route: 065
     Dates: start: 20190826, end: 20200602
  56. AMBROXOL HYDROCHLORIDE [Concomitant]
     Active Substance: AMBROXOL HYDROCHLORIDE
     Dosage: 522 MILLIGRAM
     Route: 065
     Dates: start: 20200603, end: 20200827
  57. AMBROXOL HYDROCHLORIDE [Concomitant]
     Active Substance: AMBROXOL HYDROCHLORIDE
     Dosage: 710 MILLIGRAM
     Route: 065
     Dates: start: 20200828
  58. HERBAL NOS [Concomitant]
     Active Substance: HERBALS
     Indication: Product used for unknown indication
     Dosage: 4.5 GRAM
     Route: 065
     Dates: end: 20190702
  59. MAGNESIUM OXIDE [Concomitant]
     Active Substance: MAGNESIUM OXIDE
     Indication: Product used for unknown indication
     Dosage: 0.5 GRAM
     Route: 048
     Dates: end: 20200827
  60. MAGNESIUM OXIDE [Concomitant]
     Active Substance: MAGNESIUM OXIDE
     Dosage: 0.75 GRAM
     Route: 048
     Dates: start: 20200828
  61. CHLORPROMAZINE [Concomitant]
     Active Substance: CHLORPROMAZINE
     Indication: Gaucher^s disease type II
     Dosage: 60 MILLIGRAM
     Route: 048
  62. HERBALS [Concomitant]
     Active Substance: HERBALS
     Indication: Product used for unknown indication
     Dosage: 2.5 GRAM
     Route: 048

REACTIONS (10)
  - Gastrooesophageal reflux disease [Recovered/Resolved]
  - Vesicoureteric reflux [Recovered/Resolved]
  - Urinary tract infection [Recovered/Resolved]
  - Renal impairment [Not Recovered/Not Resolved]
  - Hyperchlorhydria [Recovering/Resolving]
  - Gastric hypomotility [Recovering/Resolving]
  - Urinary tract infection [Recovered/Resolved]
  - Constipation [Recovered/Resolved]
  - Hyperuricaemia [Recovering/Resolving]
  - Anaemia [Not Recovered/Not Resolved]

NARRATIVE: CASE EVENT DATE: 20141029
